FAERS Safety Report 4740430-1 (Version None)
Quarter: 2005Q3

REPORT INFORMATION
  Report Type: 
  Country: None (occurrence: None)
  Receive Date: 20050810
  Receipt Date: 20050729
  Transmission Date: 20060218
  Serious: Yes (Other)
  Sender: FDA-Public Use
  Company Number: US-BRISTOL-MYERS SQUIBB COMPANY-13057260

PATIENT
  Sex: Female
  Weight: 68 kg

DRUGS (4)
  1. PARAPLATIN [Suspect]
     Indication: OVARIAN CANCER
     Route: 042
     Dates: start: 20050729, end: 20050729
  2. PERCOCET [Concomitant]
  3. ALOXI [Concomitant]
     Indication: PREMEDICATION
     Route: 042
  4. DECADRON [Concomitant]
     Indication: PREMEDICATION
     Route: 042

REACTIONS (7)
  - BLOOD PRESSURE IMMEASURABLE [None]
  - COMA [None]
  - GENERALISED ERYTHEMA [None]
  - HYPERHIDROSIS [None]
  - OXYGEN SATURATION ABNORMAL [None]
  - PULSE ABSENT [None]
  - WEIGHT DECREASED [None]
